FAERS Safety Report 18264246 (Version 1)
Quarter: 2020Q3

REPORT INFORMATION
  Report Type: Report from Study
  Country: BR (occurrence: BR)
  Receive Date: 20200914
  Receipt Date: 20200914
  Transmission Date: 20201103
  Serious: Yes (Other)
  Sender: FDA-Public Use
  Company Number: BR-SHIRE-BR202022926

PATIENT

DRUGS (3)
  1. FEIBA NF [Suspect]
     Active Substance: ANTI-INHIBITOR COAGULANT COMPLEX
     Indication: FACTOR VIII DEFICIENCY
     Dosage: 9000 INTERNATIONAL UNIT, 3X A WEEK
     Route: 042
     Dates: start: 19991118
  2. FEIBA NF [Suspect]
     Active Substance: ANTI-INHIBITOR COAGULANT COMPLEX
     Dosage: 9000 UNK, 3X A WEEK
     Route: 042
     Dates: start: 19991118
  3. HEMO?8R [Suspect]
     Active Substance: ANTIHEMOPHILIC FACTOR, HUMAN RECOMBINANT
     Indication: PROPHYLAXIS
     Dosage: 9000 INTERNATIONAL UNIT, 7X A WEEK
     Route: 065

REACTIONS (2)
  - Factor VIII inhibition [Recovering/Resolving]
  - Treatment failure [Recovering/Resolving]
